FAERS Safety Report 24097772 (Version 1)
Quarter: 2024Q3

REPORT INFORMATION
  Report Type: Spontaneous
  Country: GB (occurrence: GB)
  Receive Date: 20240716
  Receipt Date: 20240716
  Transmission Date: 20241016
  Serious: Yes (Disabling, Other)
  Sender: BAUSCH AND LOMB
  Company Number: None

PATIENT
  Age: 88 Year

DRUGS (1)
  1. PLENVU [Suspect]
     Active Substance: ASCORBIC ACID\POLYETHYLENE GLYCOL 3350\POTASSIUM CHLORIDE\SODIUM ASCORBATE\SODIUM CHLORIDE\SODIUM SU
     Indication: Bowel preparation
     Dosage: UNK
     Route: 065
     Dates: start: 20240506, end: 20240506

REACTIONS (7)
  - Fall [Unknown]
  - Loss of consciousness [Unknown]
  - Dizziness [Unknown]
  - Mobility decreased [Not Recovered/Not Resolved]
  - Asthenia [Recovered/Resolved with Sequelae]
  - Headache [Unknown]
  - Medication error [Unknown]

NARRATIVE: CASE EVENT DATE: 20240501
